FAERS Safety Report 5700564-1 (Version None)
Quarter: 2008Q2

REPORT INFORMATION
  Report Type: 
  Country: None (occurrence: None)
  Receive Date: 20080410
  Receipt Date: 20080402
  Transmission Date: 20081010
  Serious: Yes (Congenital Anomaly)
  Sender: FDA-Public Use
  Company Number: FR-PFIZER INC-2008029760

PATIENT
  Sex: Female
  Weight: 2.77 kg

DRUGS (2)
  1. NELFINAVIR MESILATE [Suspect]
     Route: 048
  2. COMBIVIR [Suspect]

REACTIONS (5)
  - BRAIN MALFORMATION [None]
  - CLEFT PALATE [None]
  - DRUG EXPOSURE DURING PREGNANCY [None]
  - RETROGNATHIA [None]
  - VENTRICULAR HYPERTROPHY [None]
